FAERS Safety Report 6603896-8 (Version None)
Quarter: 2010Q1

REPORT INFORMATION
  Report Type: 
  Country: None (occurrence: None)
  Receive Date: 20100226
  Receipt Date: 20090403
  Transmission Date: 20100710
  Serious: No
  Sender: FDA-Public Use
  Company Number: A0772546A

PATIENT
  Age: 53 Year
  Sex: Female

DRUGS (3)
  1. LAMICTAL CD [Suspect]
     Indication: BIPOLAR DISORDER
     Dosage: 300MG PER DAY
     Route: 048
     Dates: start: 20051206, end: 20090307
  2. GEODON [Concomitant]
     Dosage: 160MG PER DAY
     Route: 048
     Dates: start: 20080312, end: 20090303
  3. CLONAZEPAM [Concomitant]
     Indication: SLEEP DISORDER
     Route: 048
     Dates: start: 20051004

REACTIONS (1)
  - FATIGUE [None]
